FAERS Safety Report 5810772-7 (Version None)
Quarter: 2008Q3

REPORT INFORMATION
  Report Type: 
  Country: None (occurrence: None)
  Receive Date: 20080715
  Receipt Date: 20080708
  Transmission Date: 20090109
  Serious: Yes (Hospitalization)
  Sender: FDA-Public Use
  Company Number: US-GILEAD-2008-0016081

PATIENT
  Sex: Male

DRUGS (2)
  1. LETAIRIS [Suspect]
     Indication: PULMONARY ARTERIAL HYPERTENSION
     Dates: end: 20080301
  2. LANTUS [Concomitant]

REACTIONS (4)
  - ACUTE RESPIRATORY FAILURE [None]
  - APHAGIA [None]
  - ATRIAL FIBRILLATION [None]
  - LOBAR PNEUMONIA [None]
